FAERS Safety Report 15581992 (Version 1)
Quarter: 2018Q4

REPORT INFORMATION
  Report Type: Spontaneous
  Country: US (occurrence: US)
  Receive Date: 20181102
  Receipt Date: 20181102
  Transmission Date: 20190205
  Serious: No
  Sender: FDA-Public Use
  Company Number: US-RADIUS HEALTH INC.-2018US002202

PATIENT
  Age: 66 Year
  Sex: Female

DRUGS (1)
  1. TYMLOS [Suspect]
     Active Substance: ABALOPARATIDE
     Indication: OSTEOPOROSIS POSTMENOPAUSAL
     Dosage: UNK
     Dates: start: 20180713

REACTIONS (5)
  - Injection site discolouration [Unknown]
  - Headache [Unknown]
  - Injection site haemorrhage [Unknown]
  - Dizziness [Unknown]
  - Product dose omission [Unknown]

NARRATIVE: CASE EVENT DATE: 20180713
